FAERS Safety Report 4503357-6 (Version None)
Quarter: 2004Q4

REPORT INFORMATION
  Report Type: 
  Country: None (occurrence: None)
  Receive Date: 20041112
  Receipt Date: 20041026
  Transmission Date: 20050328
  Serious: Yes (Death)
  Sender: FDA-Public Use
  Company Number: S04-NOR-06614-01

PATIENT
  Age: 84 Year
  Sex: Female

DRUGS (13)
  1. CIPRALEX (ESCITALOPRAM) [Suspect]
     Indication: DEPRESSION
     Dosage: 5 MG QD PO
     Route: 048
     Dates: start: 20040908, end: 20040912
  2. ALDACTONE [Suspect]
     Indication: CARDIAC FAILURE
     Dosage: 12.5 MG QD PO
     Route: 048
     Dates: start: 20040909, end: 20040912
  3. DIGITOXIN TAB [Concomitant]
  4. SYNALAR (FLUOCINOLONE ACETONIDE) [Concomitant]
  5. BETNOVATE (BETAMETHASONE) [Concomitant]
  6. PHU CHEE [Concomitant]
  7. KONAKION [Concomitant]
  8. WARFARIN SODIUM [Concomitant]
  9. AMOXICILLIN [Concomitant]
  10. PARACET (PARACETAMOL) [Concomitant]
  11. COZAAR [Concomitant]
  12. FUROSEMIDE [Concomitant]
  13. LIPITOR [Concomitant]

REACTIONS (10)
  - DRUG INTERACTION [None]
  - HEPATIC FAILURE [None]
  - HEPATITIS [None]
  - HYPERHIDROSIS [None]
  - HYPERVENTILATION [None]
  - INTERNATIONAL NORMALISED RATIO INCREASED [None]
  - MULTI-ORGAN FAILURE [None]
  - PAIN [None]
  - PANCREATITIS [None]
  - RIGHT VENTRICULAR FAILURE [None]
